FAERS Safety Report 10086054 (Version 1)
Quarter: 2014Q2

REPORT INFORMATION
  Report Type: Spontaneous
  Country: US (occurrence: US)
  Receive Date: 20140418
  Receipt Date: 20140418
  Transmission Date: 20141212
  Serious: No
  Sender: FDA-Public Use
  Company Number: US-009507513-1404USA008221

PATIENT
  Sex: Female

DRUGS (1)
  1. ASMANEX TWISTHALER [Suspect]
     Indication: ASTHMA
     Dosage: 220,2 SPRAYS IN THE MORNING,2 SPRAYS AT NIGHT AND SOMETIMES ONE EXTRA SPRAY

REACTIONS (2)
  - Drug ineffective [Unknown]
  - Chest discomfort [Unknown]
